FAERS Safety Report 26218273 (Version 1)
Quarter: 2025Q4

REPORT INFORMATION
  Report Type: Report from Study
  Country: US (occurrence: US)
  Receive Date: 20251231
  Receipt Date: 20251231
  Transmission Date: 20260118
  Serious: No
  Sender: MALLINCKRODT
  Company Number: US-MALLINCKRODT-MNK202508342

PATIENT
  Sex: Female

DRUGS (1)
  1. CORTICOTROPIN [Suspect]
     Active Substance: CORTICOTROPIN
     Indication: Ocular pemphigoid
     Dosage: UNKNOWN

REACTIONS (5)
  - Alopecia [Unknown]
  - Arthralgia [Unknown]
  - Increased tendency to bruise [Unknown]
  - Hair texture abnormal [Unknown]
  - Fatigue [Unknown]
